FAERS Safety Report 21232935 (Version 10)
Quarter: 2022Q4

REPORT INFORMATION
  Report Type: Spontaneous
  Country: US (occurrence: US)
  Receive Date: 20220819
  Receipt Date: 20221227
  Transmission Date: 20230113
  Serious: No
  Sender: FDA-Public Use
  Company Number: US-PFIZER INC-PV202200046335

PATIENT
  Age: 63 Year
  Sex: Female

DRUGS (2)
  1. IBRANCE [Suspect]
     Active Substance: PALBOCICLIB
     Dosage: 125 MG
  2. IBRANCE [Suspect]
     Active Substance: PALBOCICLIB
     Dosage: 75 MG

REACTIONS (9)
  - Headache [Unknown]
  - Diarrhoea [Not Recovered/Not Resolved]
  - Hypoaesthesia [Unknown]
  - Dehydration [Unknown]
  - Dizziness [Unknown]
  - Alopecia [Not Recovered/Not Resolved]
  - Ageusia [Recovering/Resolving]
  - Decreased appetite [Recovering/Resolving]
  - Product dose omission issue [Unknown]

NARRATIVE: CASE EVENT DATE: 20221101
